FAERS Safety Report 17911283 (Version 1)
Quarter: 2020Q2

REPORT INFORMATION
  Report Type: Spontaneous
  Country: US (occurrence: US)
  Receive Date: 20200617
  Receipt Date: 20200617
  Transmission Date: 20200714
  Serious: No
  Sender: FDA-Public Use
  Company Number: None

PATIENT

DRUGS (1)
  1. BACLOFEN. [Suspect]
     Active Substance: BACLOFEN

REACTIONS (6)
  - Dizziness [None]
  - Nausea [None]
  - Back pain [None]
  - Abdominal discomfort [None]
  - Asthenia [None]
  - Lethargy [None]
